FAERS Safety Report 15323330 (Version 1)
Quarter: 2018Q3

REPORT INFORMATION
  Report Type: Other
  Country: CN (occurrence: CN)
  Receive Date: 20180827
  Receipt Date: 20180827
  Transmission Date: 20181010
  Serious: Yes (Other)
  Sender: FDA-Public Use
  Company Number: CN-GE HEALTHCARE LIFE SCIENCES-2018CSU003265

PATIENT

DRUGS (1)
  1. VISIPAQUE [Suspect]
     Active Substance: IODIXANOL
     Indication: ACUTE CORONARY SYNDROME
     Dosage: 60 ML, SINGLE
     Route: 042
     Dates: start: 20180511, end: 20180511

REACTIONS (1)
  - Dermatitis allergic [Recovered/Resolved]

NARRATIVE: CASE EVENT DATE: 20180514
